FAERS Safety Report 19693657 (Version 1)
Quarter: 2021Q3

REPORT INFORMATION
  Report Type: Spontaneous
  Country: US (occurrence: US)
  Receive Date: 20210813
  Receipt Date: 20210813
  Transmission Date: 20211014
  Serious: No
  Sender: FDA-Public Use
  Company Number: US-EMD SERONO-9256903

PATIENT
  Age: 66 Year
  Sex: Male

DRUGS (1)
  1. SEROSTIM [Suspect]
     Active Substance: SOMATROPIN
     Indication: HIV INFECTION
     Route: 058
     Dates: start: 202105

REACTIONS (2)
  - Mental disorder [Unknown]
  - Malaise [Unknown]

NARRATIVE: CASE EVENT DATE: 202105
